FAERS Safety Report 18490468 (Version 1)
Quarter: 2020Q4

REPORT INFORMATION
  Report Type: Spontaneous
  Country: US (occurrence: US)
  Receive Date: 20201111
  Receipt Date: 20201111
  Transmission Date: 20210114
  Serious: Yes (Other)
  Sender: FDA-Public Use
  Company Number: None

PATIENT
  Age: 53 Year
  Sex: Male
  Weight: 118 kg

DRUGS (1)
  1. PALYNZIQ [Suspect]
     Active Substance: PEGVALIASE-PQPZ
     Indication: PHENYLKETONURIA
     Dosage: ?          OTHER FREQUENCY:4 TIMES PER WEEK;?
     Route: 058
     Dates: start: 20200916, end: 20201110

REACTIONS (4)
  - Hypoaesthesia [None]
  - Swollen tongue [None]
  - Chest pain [None]
  - Throat tightness [None]

NARRATIVE: CASE EVENT DATE: 20201110
